FAERS Safety Report 9261549 (Version 3)
Quarter: 2013Q2

REPORT INFORMATION
  Report Type: Spontaneous
  Country: JP (occurrence: JP)
  Receive Date: 20130429
  Receipt Date: 20130607
  Transmission Date: 20140414
  Serious: Yes (Hospitalization)
  Sender: FDA-Public Use
  Company Number: JP-MERCK-1304JPN016445

PATIENT
  Age: 90 Year
  Sex: Female

DRUGS (14)
  1. BONALON BAG [Suspect]
     Indication: OSTEOPOROSIS
     Dosage: 900 MICROGRAM, PER 4 WEEK
     Route: 041
     Dates: start: 20121217, end: 20130415
  2. NEXIUM [Concomitant]
     Indication: GASTROOESOPHAGEAL REFLUX DISEASE
     Dosage: 20 UNIT, QD
     Route: 048
     Dates: start: 20130121
  3. MICAMLO [Concomitant]
     Indication: HYPERTENSION
     Dosage: UNK
     Route: 048
     Dates: start: 20130121
  4. ATORVASTATIN [Concomitant]
     Indication: HYPERCHOLESTEROLAEMIA
     Dosage: 5 MG, QD
     Route: 048
     Dates: start: 20130121
  5. FERROMIA [Concomitant]
     Indication: IRON DEFICIENCY ANAEMIA
     Dosage: 50 MG, QD
     Route: 048
     Dates: start: 20130121
  6. LAC-B [Concomitant]
     Indication: CONSTIPATION
     Dosage: 3 G, QD
     Route: 048
     Dates: start: 20130121
  7. MAGNESIUM OXIDE [Concomitant]
     Indication: CONSTIPATION
     Dosage: 0.99 G, QD
     Route: 048
     Dates: start: 20130121
  8. PANTOSIN [Concomitant]
     Indication: CONSTIPATION
     Dosage: 0.99 G, QD
     Route: 048
     Dates: start: 20130121
  9. ADOFEED [Concomitant]
     Indication: OSTEOARTHRITIS
     Dosage: UNK
     Dates: start: 2005
  10. MOHRUS [Concomitant]
     Indication: OSTEOARTHRITIS
     Dosage: UNK
     Dates: start: 2005
  11. TERPERAN [Concomitant]
     Indication: GASTRITIS
     Dosage: 15 MG, QD
     Route: 048
     Dates: start: 20130121, end: 201304
  12. FOSAMAC TABLETS 35MG [Concomitant]
     Indication: OSTEOPOROSIS
     Dosage: 35 MG, QD
     Route: 048
     Dates: start: 200711, end: 201102
  13. ELCITONIN [Concomitant]
     Indication: OSTEOPOROSIS
     Dosage: 20/DAY IM
     Route: 030
     Dates: start: 200902, end: 20121119
  14. EVISTA [Concomitant]
     Indication: OSTEOPOROSIS
     Dosage: 60 MG, QD
     Route: 048
     Dates: start: 20110314, end: 20111030

REACTIONS (1)
  - Gastrointestinal haemorrhage [Recovered/Resolved]
